FAERS Safety Report 5309558-1 (Version None)
Quarter: 2007Q2

REPORT INFORMATION
  Report Type: 
  Country: None (occurrence: None)
  Receive Date: 20070427
  Receipt Date: 20070105
  Transmission Date: 20071010
  Serious: No
  Sender: FDA-Public Use
  Company Number: US-GLAXOSMITHKLINE-A0634479A

PATIENT
  Age: 25 Year
  Sex: Female

DRUGS (4)
  1. DEXTROAMPHETAMINE SULFATE [Suspect]
     Indication: ATTENTION DEFICIT/HYPERACTIVITY DISORDER
     Dosage: 5MG VARIABLE DOSE
     Route: 048
     Dates: start: 20060101
  2. CORTEF [Concomitant]
  3. FLORINEF [Concomitant]
  4. WELLBUTRIN [Concomitant]

REACTIONS (2)
  - DISTURBANCE IN ATTENTION [None]
  - DRUG INEFFECTIVE [None]
